FAERS Safety Report 7878066-6 (Version None)
Quarter: 2011Q4

REPORT INFORMATION
  Report Type: 
  Country: None (occurrence: None)
  Receive Date: 20111101
  Receipt Date: 20111025
  Transmission Date: 20120403
  Serious: Yes (Other)
  Sender: FDA-Public Use
  Company Number: US-BIOGENIDEC-2011BI038646

PATIENT
  Sex: Female

DRUGS (11)
  1. PEPCID [Concomitant]
  2. AVONEX [Suspect]
     Route: 030
     Dates: start: 20060317, end: 20071126
  3. CLONAZEPAM [Concomitant]
  4. ATENOLOL [Concomitant]
  5. LISINOPRIL AND HYDROCHLOROTHIAZIDE [Concomitant]
  6. ULTRAM [Concomitant]
  7. AVONEX [Suspect]
     Indication: MULTIPLE SCLEROSIS
     Route: 030
     Dates: start: 20100123
  8. TIZANIDINE HCL [Concomitant]
  9. NORTRIPTYLINE HCL [Concomitant]
  10. LEVOTHYROXINE SODIUM [Concomitant]
  11. VITAMIN D [Concomitant]

REACTIONS (2)
  - LIVER DISORDER [None]
  - CONVULSION [None]
